FAERS Safety Report 19675136 (Version 7)
Quarter: 2023Q2

REPORT INFORMATION
  Report Type: Report from Study
  Country: JP (occurrence: JP)
  Receive Date: 20210809
  Receipt Date: 20230522
  Transmission Date: 20230722
  Serious: Yes (Hospitalization)
  Sender: FDA-Public Use
  Company Number: JP-ALNYLAM PHARMACEUTICALS, INC.-ALN-2021-001888

PATIENT

DRUGS (8)
  1. ONPATTRO [Suspect]
     Active Substance: PATISIRAN SODIUM
     Indication: Hereditary neuropathic amyloidosis
     Dosage: 21.9 MILLIGRAM
     Route: 041
     Dates: start: 20200409, end: 20221117
  2. DEXAMETHASONE SODIUM PHOSPHATE [Concomitant]
     Active Substance: DEXAMETHASONE SODIUM PHOSPHATE
     Indication: Prophylaxis
     Dosage: 9.9 MILLIGRAM, SINGLE
     Route: 065
     Dates: start: 20200409
  3. DEXAMETHASONE SODIUM PHOSPHATE [Concomitant]
     Active Substance: DEXAMETHASONE SODIUM PHOSPHATE
     Dosage: 6.6 MILLIGRAM, SINGLE
     Route: 065
     Dates: start: 20210401, end: 20221117
  4. CHLORPHENIRAMINE MALEATE [Concomitant]
     Active Substance: CHLORPHENIRAMINE MALEATE
     Indication: Prophylaxis
     Dosage: 10 MILLIGRAM, SINGLE
     Route: 065
     Dates: start: 20200409, end: 20221117
  5. FAMOTIDINE [Concomitant]
     Active Substance: FAMOTIDINE
     Indication: Prophylaxis
     Dosage: 20 MILLIGRAM, SINGLE
     Route: 065
     Dates: start: 20200409, end: 20221117
  6. CALONAL [Concomitant]
     Active Substance: ACETAMINOPHEN
     Indication: Prophylaxis
     Dosage: 500 MILLIGRAM, SINGLE
     Route: 065
     Dates: start: 20200409, end: 20200521
  7. CALONAL [Concomitant]
     Active Substance: ACETAMINOPHEN
     Dosage: 400 MILLIGRAM, SINGLE
     Route: 065
     Dates: start: 20200611, end: 20221117
  8. VITAMINS [Concomitant]
     Active Substance: VITAMINS
     Indication: Prophylaxis
     Dosage: 1 GRAM, QD
     Route: 065
     Dates: start: 20200409

REACTIONS (4)
  - Pneumonia [Recovered/Resolved]
  - Cellulitis [Recovered/Resolved]
  - Inappropriate schedule of product administration [Unknown]
  - Inappropriate schedule of product administration [Unknown]

NARRATIVE: CASE EVENT DATE: 20201113
